FAERS Safety Report 11472470 (Version 1)
Quarter: 2015Q3

REPORT INFORMATION
  Report Type: Spontaneous
  Country: US (occurrence: US)
  Receive Date: 20150908
  Receipt Date: 20150908
  Transmission Date: 20151125
  Serious: No
  Sender: FDA-Public Use
  Company Number: US-ELI_LILLY_AND_COMPANY-US201509001777

PATIENT
  Sex: Male

DRUGS (1)
  1. TRULICITY [Suspect]
     Active Substance: DULAGLUTIDE
     Indication: TYPE 2 DIABETES MELLITUS
     Dosage: 1.5 MG, UNKNOWN
     Route: 065
     Dates: end: 20150831

REACTIONS (2)
  - Dyspepsia [Not Recovered/Not Resolved]
  - Nausea [Not Recovered/Not Resolved]
